FAERS Safety Report 25729230 (Version 1)
Quarter: 2025Q3

REPORT INFORMATION
  Report Type: Spontaneous
  Country: US (occurrence: US)
  Receive Date: 20250827
  Receipt Date: 20250827
  Transmission Date: 20251020
  Serious: Yes (Hospitalization, Other)
  Sender: UCB
  Company Number: US-UCBSA-2025051811

PATIENT
  Sex: Female

DRUGS (1)
  1. CIMZIA [Suspect]
     Active Substance: CERTOLIZUMAB PEGOL
     Indication: Rheumatoid arthritis
     Dates: end: 202507

REACTIONS (3)
  - Fall [Unknown]
  - Femur fracture [Unknown]
  - Hip fracture [Unknown]

NARRATIVE: CASE EVENT DATE: 20250101
